FAERS Safety Report 18283723 (Version 2)
Quarter: 2020Q4

REPORT INFORMATION
  Report Type: Spontaneous
  Country: US (occurrence: US)
  Receive Date: 20200918
  Receipt Date: 20201026
  Transmission Date: 20210113
  Serious: Yes (Other)
  Sender: FDA-Public Use
  Company Number: US-ROCHE-2674450

PATIENT
  Age: 57 Year
  Sex: Male
  Weight: 131.21 kg

DRUGS (2)
  1. ACTIVASE [Suspect]
     Active Substance: ALTEPLASE
     Indication: CEREBROVASCULAR ACCIDENT
     Route: 065
     Dates: start: 20200907, end: 20200907
  2. ACTIVASE [Suspect]
     Active Substance: ALTEPLASE

REACTIONS (3)
  - Off label use [Unknown]
  - Product closure issue [Unknown]
  - No adverse event [Unknown]

NARRATIVE: CASE EVENT DATE: 20200907
